FAERS Safety Report 9495439 (Version 2)
Quarter: 2013Q4

REPORT INFORMATION
  Report Type: Spontaneous
  Country: US (occurrence: US)
  Receive Date: 20130903
  Receipt Date: 20131105
  Transmission Date: 20140711
  Serious: No
  Sender: FDA-Public Use
  Company Number: US-PFIZER INC-2013250515

PATIENT
  Age: 70 Year
  Sex: Female
  Weight: 61.2 kg

DRUGS (3)
  1. LEVOTHYROXINE SODIUM [Suspect]
     Indication: THYROID DISORDER
     Dosage: 100 UG, 1X/DAY
  2. INSULIN [Suspect]
     Indication: DIABETES MELLITUS
     Dosage: UNK
     Dates: start: 201307
  3. ZOCOR [Concomitant]
     Dosage: UNK

REACTIONS (3)
  - Tremor [Recovered/Resolved]
  - Blood glucose increased [Recovered/Resolved]
  - Drug intolerance [Unknown]
